FAERS Safety Report 6440336-6 (Version None)
Quarter: 2009Q4

REPORT INFORMATION
  Report Type: 
  Country: None (occurrence: None)
  Receive Date: 20091113
  Receipt Date: 20091030
  Transmission Date: 20100525
  Serious: Yes (Other)
  Sender: FDA-Public Use
  Company Number: PHHY2009JP47773

PATIENT
  Age: 82 Year
  Sex: Female

DRUGS (4)
  1. LOCHOL [Suspect]
     Indication: LOW DENSITY LIPOPROTEIN INCREASED
     Dosage: 30 MG DAILY
     Route: 048
     Dates: start: 20090824, end: 20091019
  2. MAINTATE [Concomitant]
     Dosage: 5 MG, UNK
     Route: 048
  3. ALFAROL [Concomitant]
     Route: 048
  4. FOSAMAC [Concomitant]
     Route: 048

REACTIONS (4)
  - ALANINE AMINOTRANSFERASE INCREASED [None]
  - ASPARTATE AMINOTRANSFERASE INCREASED [None]
  - HEPATIC ENZYME ABNORMAL [None]
  - LIVER DISORDER [None]
